FAERS Safety Report 7054139-5 (Version None)
Quarter: 2010Q4

REPORT INFORMATION
  Report Type: 
  Country: None (occurrence: None)
  Receive Date: 20101020
  Receipt Date: 20100827
  Transmission Date: 20110411
  Serious: No
  Sender: FDA-Public Use
  Company Number: US-BAYER-201032186NA

PATIENT
  Age: 69 Year
  Sex: Male
  Weight: 82 kg

DRUGS (4)
  1. ULTRAVIST 370 [Suspect]
     Indication: LUNG NEOPLASM
     Dosage: AS USED: 80 ML  UNIT DOSE: 500 ML
     Route: 042
     Dates: start: 20100827, end: 20100827
  2. TERAZOCIN [Concomitant]
  3. AMIODIPINE [Concomitant]
  4. ADVAIR DISKUS 100/50 [Concomitant]

REACTIONS (1)
  - PRURITUS [None]
